FAERS Safety Report 15240849 (Version 1)
Quarter: 2018Q3

REPORT INFORMATION
  Report Type: Spontaneous
  Country: US (occurrence: US)
  Receive Date: 20180711
  Receipt Date: 20180711
  Transmission Date: 20181010
  Serious: Yes (Disabling)
  Sender: FDA-Public Use
  Company Number: None

PATIENT
  Age: 44 Year
  Sex: Female
  Weight: 63 kg

DRUGS (14)
  1. LEVOFLOXACIN. [Suspect]
     Active Substance: LEVOFLOXACIN
     Indication: RESPIRATORY TRACT INFECTION
     Dosage: ?          QUANTITY:1 TABLET(S);?
     Route: 048
     Dates: start: 20150619, end: 20150628
  2. GABAPENTIN. [Concomitant]
     Active Substance: GABAPENTIN
  3. COQ10 [Concomitant]
     Active Substance: UBIDECARENONE
  4. VITAMIN D3 [Concomitant]
     Active Substance: CHOLECALCIFEROL
  5. VITAMIN B12 [Concomitant]
     Active Substance: CYANOCOBALAMIN
  6. LISINOPRIL. [Concomitant]
     Active Substance: LISINOPRIL
  7. PROBIOTICS [Concomitant]
     Active Substance: PROBIOTICS NOS
  8. SAVELLA [Concomitant]
     Active Substance: MILNACIPRAN HYDROCHLORIDE
  9. ESTRODIAL [Concomitant]
     Active Substance: ESTRADIOL
  10. BIOTIN [Concomitant]
     Active Substance: BIOTIN
  11. OMEGA 3 [Concomitant]
     Active Substance: OMEGA-3 FATTY ACIDS
  12. NABUMETONE. [Concomitant]
     Active Substance: NABUMETONE
  13. CYCLOBENZOPRINE [Concomitant]
     Active Substance: CYCLOBENZAPRINE
  14. MULTIVITAMIN [Concomitant]
     Active Substance: VITAMINS

REACTIONS (18)
  - Grip strength decreased [None]
  - Arthralgia [None]
  - Nerve injury [None]
  - Tendonitis [None]
  - Pain in extremity [None]
  - Surgical failure [None]
  - Joint arthroplasty [None]
  - Muscular weakness [None]
  - Tendon disorder [None]
  - Epicondylitis [None]
  - Joint instability [None]
  - Musculoskeletal pain [None]
  - Tendon discomfort [None]
  - Fibromyalgia [None]
  - Rheumatoid arthritis [None]
  - Vision blurred [None]
  - Quality of life decreased [None]
  - Osteoarthritis [None]

NARRATIVE: CASE EVENT DATE: 20150619
